FAERS Safety Report 8052528-3 (Version None)
Quarter: 2012Q1

REPORT INFORMATION
  Report Type: 
  Country: None (occurrence: None)
  Receive Date: 20120118
  Receipt Date: 20120113
  Transmission Date: 20120608
  Serious: Yes (Death)
  Sender: FDA-Public Use
  Company Number: US-CELGENEUS-163-21880-12011410

PATIENT
  Sex: Female

DRUGS (4)
  1. REVLIMID [Suspect]
     Dosage: 10 MILLIGRAM
     Route: 048
     Dates: start: 20111216
  2. ALLOPURINOL [Concomitant]
     Route: 065
  3. SIMVASTATIN [Concomitant]
     Route: 065
  4. AMLODIPINE BESYLATE [Concomitant]
     Route: 065

REACTIONS (1)
  - DEATH [None]
